FAERS Safety Report 4540476-2 (Version None)
Quarter: 2004Q4

REPORT INFORMATION
  Report Type: 
  Country: None (occurrence: None)
  Receive Date: 20041228
  Receipt Date: 20041213
  Transmission Date: 20050328
  Serious: Yes (Death)
  Sender: FDA-Public Use
  Company Number: 2004S1003678

PATIENT
  Age: 48 Year
  Sex: Female

DRUGS (3)
  1. CLOZAPINE [Suspect]
     Indication: SCHIZOPHRENIA
     Dosage: 450 MG BID, ORAL
     Route: 048
     Dates: start: 20040601, end: 20041130
  2. VENLAFAXINE HCL [Concomitant]
  3. DONEPEZIL HCL [Concomitant]

REACTIONS (1)
  - INJURY ASPHYXIATION [None]
